FAERS Safety Report 4390807-1 (Version None)
Quarter: 2004Q3

REPORT INFORMATION
  Report Type: 
  Country: None (occurrence: None)
  Receive Date: 20040706
  Receipt Date: 20040706
  Transmission Date: 20050211
  Serious: Yes (Other)
  Sender: FDA-Public Use
  Company Number: None

PATIENT
  Age: 35 Year
  Sex: Male
  Weight: 83 kg

DRUGS (1)
  1. VANCOMYCIN [Suspect]
     Indication: ARTHRITIS INFECTIVE
     Dosage: 750 MG Q 8 IV
     Route: 042
     Dates: start: 20040621

REACTIONS (2)
  - GENITAL PRURITUS MALE [None]
  - GENITAL RASH [None]
